FAERS Safety Report 17881054 (Version 2)
Quarter: 2020Q3

REPORT INFORMATION
  Report Type: Other
  Country: US (occurrence: US)
  Receive Date: 20200610
  Receipt Date: 20200701
  Transmission Date: 20201103
  Serious: Yes (Other)
  Sender: FDA-Public Use
  Company Number: US-APPCO PHARMA LLC-2085613

PATIENT
  Age: 4 Year
  Sex: Male

DRUGS (1)
  1. BUDESONIDE. [Suspect]
     Active Substance: BUDESONIDE
     Indication: PROTEIN-LOSING GASTROENTEROPATHY
     Route: 065

REACTIONS (4)
  - Growth failure [Recovering/Resolving]
  - Product use in unapproved indication [Unknown]
  - Cushingoid [Unknown]
  - Adrenal suppression [Unknown]
